FAERS Safety Report 6139907-6 (Version None)
Quarter: 2009Q2

REPORT INFORMATION
  Report Type: 
  Country: None (occurrence: None)
  Receive Date: 20090401
  Receipt Date: 20090323
  Transmission Date: 20091009
  Serious: Yes (Other)
  Sender: FDA-Public Use
  Company Number: US-TEVA-189273USA

PATIENT
  Age: 75 Year
  Sex: Female

DRUGS (6)
  1. FLUOROURACIL [Suspect]
     Indication: COLON CANCER
  2. FOLIC ACID [Suspect]
     Indication: COLON CANCER
  3. OXALIPLATIN [Suspect]
     Indication: COLON CANCER
  4. IRINOTECAN HCL [Suspect]
     Indication: COLON CANCER
  5. CETUXIMAB [Suspect]
     Indication: COLON CANCER
  6. CAPECITABINE [Suspect]
     Indication: COLON CANCER

REACTIONS (1)
  - STRESS CARDIOMYOPATHY [None]
